FAERS Safety Report 6832269-8 (Version None)
Quarter: 2010Q3

REPORT INFORMATION
  Report Type: 
  Country: None (occurrence: None)
  Receive Date: 20100712
  Receipt Date: 20100707
  Transmission Date: 20110219
  Serious: Yes (Other)
  Sender: FDA-Public Use
  Company Number: CHPA2010US11186

PATIENT
  Sex: Female

DRUGS (2)
  1. GAS-X CHEWABLE TABLETS PEPPERMINT CREME (NCH) [Suspect]
     Indication: GASTROPTOSIS
     Dosage: 2 TO 6 TABLETS, QD
     Route: 048
     Dates: start: 20080101
  2. GAS-X EXTRA STRENGTH SOFTGELS (NCH) [Suspect]
     Indication: GASTROPTOSIS
     Dosage: 2 DF, BID
     Route: 048
     Dates: start: 20080101

REACTIONS (2)
  - HEPATIC FUNCTION ABNORMAL [None]
  - OFF LABEL USE [None]
